FAERS Safety Report 4585453-0 (Version None)
Quarter: 2005Q1

REPORT INFORMATION
  Report Type: 
  Country: None (occurrence: None)
  Receive Date: 20050217
  Receipt Date: 20050207
  Transmission Date: 20050727
  Serious: Yes (Other)
  Sender: FDA-Public Use
  Company Number: US-AMGEN-US112125

PATIENT
  Age: 48 Year
  Sex: Female

DRUGS (1)
  1. ENBREL [Suspect]
     Indication: RHEUMATOID ARTHRITIS
     Dates: start: 19990801, end: 20050101

REACTIONS (4)
  - BRAIN SCAN ABNORMAL [None]
  - CATARACT [None]
  - MULTIPLE SCLEROSIS [None]
  - VISUAL FIELD DEFECT [None]
